FAERS Safety Report 8202662 (Version 3)
Quarter: 2014Q1

REPORT INFORMATION
  Report Type: Report from Study
  Country: SG (occurrence: SG)
  Receive Date: 20111027
  Receipt Date: 20140130
  Transmission Date: 20141002
  Serious: Yes (Hospitalization)
  Sender: FDA-Public Use
  Company Number: PHHY2011SG91821

PATIENT
  Age: 40 Year
  Sex: Male

DRUGS (3)
  1. GLIVEC [Suspect]
     Indication: CHRONIC MYELOID LEUKAEMIA
     Dosage: 400 MG, DAILY
     Route: 048
     Dates: start: 20110520
  2. ARCOXIA [Concomitant]
     Dosage: 120 MG, OM
  3. GABAPENTIN [Concomitant]
     Dosage: 300 MG, TID

REACTIONS (7)
  - Pelvic mass [Not Recovered/Not Resolved]
  - Neuralgia [Not Recovered/Not Resolved]
  - Neoplasm recurrence [Not Recovered/Not Resolved]
  - Enterocutaneous fistula [Not Recovered/Not Resolved]
  - Fistula discharge [Not Recovered/Not Resolved]
  - Road traffic accident [Unknown]
  - Pain [Recovered/Resolved]
